FAERS Safety Report 11432079 (Version 1)
Quarter: 2015Q3

REPORT INFORMATION
  Report Type: Spontaneous
  Country: US (occurrence: US)
  Receive Date: 20150828
  Receipt Date: 20150828
  Transmission Date: 20151125
  Serious: Yes (Other)
  Sender: FDA-Public Use
  Company Number: US-ABBVIE-15P-163-1450115-00

PATIENT
  Sex: Male

DRUGS (2)
  1. ANDROGEL [Suspect]
     Active Substance: TESTOSTERONE
     Indication: ANDROGEN REPLACEMENT THERAPY
     Route: 061
     Dates: start: 20131224, end: 20140225
  2. TESTIM [Suspect]
     Active Substance: TESTOSTERONE
     Indication: ANDROGEN REPLACEMENT THERAPY
     Route: 065
     Dates: start: 20131224, end: 20140225

REACTIONS (8)
  - Mitral valve incompetence [Unknown]
  - Hypokinesia [Unknown]
  - Arterial occlusive disease [Unknown]
  - Myocardial infarction [Unknown]
  - Bundle branch block right [Unknown]
  - Acute kidney injury [Unknown]
  - Left ventricular dysfunction [Unknown]
  - Pulmonary hypertension [Unknown]

NARRATIVE: CASE EVENT DATE: 20140225
